FAERS Safety Report 6415957-7 (Version None)
Quarter: 2009Q4

REPORT INFORMATION
  Report Type: 
  Country: None (occurrence: None)
  Receive Date: 20091027
  Receipt Date: 20091016
  Transmission Date: 20100525
  Serious: Yes (Death, Congenital Anomaly)
  Sender: FDA-Public Use
  Company Number: B0597899A

PATIENT
  Sex: Female

DRUGS (1)
  1. LAMOTRIGINE [Suspect]

REACTIONS (2)
  - DRUG EXPOSURE DURING PREGNANCY [None]
  - INTRA-UTERINE DEATH [None]
